FAERS Safety Report 10271477 (Version 3)
Quarter: 2014Q3

REPORT INFORMATION
  Report Type: Spontaneous
  Country: JP (occurrence: JP)
  Receive Date: 20140701
  Receipt Date: 20140708
  Transmission Date: 20150326
  Serious: No
  Sender: FDA-Public Use
  Company Number: JP-PFIZER INC-2014177142

PATIENT
  Age: 42 Year
  Sex: Female

DRUGS (5)
  1. MEROPEN [Concomitant]
     Active Substance: MEROPENEM
     Route: 042
  2. KENKETSU GLOVENIN I NICHIYAKU [Concomitant]
     Route: 042
  3. LASIX [Concomitant]
     Active Substance: FUROSEMIDE
     Route: 042
  4. VANCOMYCIN [Suspect]
     Active Substance: VANCOMYCIN
     Dosage: UNK
     Route: 042
  5. DALACIN [Suspect]
     Active Substance: CLINDAMYCIN\CLINDAMYCIN PHOSPHATE
     Indication: STREPTOCOCCUS TEST POSITIVE
     Dosage: UNK
     Route: 042
     Dates: start: 20140623, end: 201406

REACTIONS (2)
  - Infusion site extravasation [Recovering/Resolving]
  - Peripheral swelling [Recovering/Resolving]

NARRATIVE: CASE EVENT DATE: 20140625
